FAERS Safety Report 10442213 (Version 1)
Quarter: 2014Q3

REPORT INFORMATION
  Report Type: Spontaneous
  Country: BE (occurrence: BE)
  Receive Date: 20140909
  Receipt Date: 20140909
  Transmission Date: 20150326
  Serious: Yes (Death, Hospitalization)
  Sender: FDA-Public Use
  Company Number: PHHY2014BE111439

PATIENT
  Age: 40 Year
  Sex: Male

DRUGS (3)
  1. MEDROL [Suspect]
     Active Substance: METHYLPREDNISOLONE
  2. VALPROIC ACID. [Suspect]
     Active Substance: VALPROIC ACID
  3. METHOTREXATE [Suspect]
     Active Substance: METHOTREXATE

REACTIONS (5)
  - Aphasia [Unknown]
  - Neurological decompensation [Unknown]
  - Death [Fatal]
  - Hemiparesis [Unknown]
  - Drug ineffective [Unknown]
